FAERS Safety Report 4433539-3 (Version None)
Quarter: 2004Q3

REPORT INFORMATION
  Report Type: 
  Country: None (occurrence: None)
  Receive Date: 20040824
  Receipt Date: 20040810
  Transmission Date: 20050211
  Serious: Yes (Other)
  Sender: FDA-Public Use
  Company Number: 2004228663US

PATIENT
  Age: 76 Year
  Sex: Male
  Weight: 63.5 kg

DRUGS (4)
  1. DETROL [Suspect]
     Indication: URINARY INCONTINENCE
  2. DETROL LA [Suspect]
  3. CELEBREX [Concomitant]
  4. ALL OTHER THERAPEUTIC PRODUCTS [Concomitant]

REACTIONS (6)
  - ANOREXIA [None]
  - NAUSEA [None]
  - NOCTURIA [None]
  - RENAL IMPAIRMENT [None]
  - URINARY RETENTION [None]
  - WEIGHT DECREASED [None]
